FAERS Safety Report 17457514 (Version 1)
Quarter: 2020Q1

REPORT INFORMATION
  Report Type: Spontaneous
  Country: ES (occurrence: ES)
  Receive Date: 20200225
  Receipt Date: 20200225
  Transmission Date: 20200409
  Serious: Yes (Other)
  Sender: FDA-Public Use
  Company Number: ES-JNJFOC-20200227818

PATIENT
  Age: 31 Year
  Sex: Male
  Weight: 78.5 kg

DRUGS (2)
  1. XARELTO [Suspect]
     Active Substance: RIVAROXABAN
     Indication: DEEP VEIN THROMBOSIS
     Dosage: 1 CADA 24H
     Route: 048
     Dates: start: 20200127, end: 20200130
  2. SYMTUZA [Suspect]
     Active Substance: COBICISTAT\DARUNAVIR\EMTRICITABINE\TENOFOVIR ALAFENAMIDE
     Indication: HIV INFECTION
     Dosage: 1 COMP CADA 24H
     Route: 048
     Dates: start: 20180823, end: 20200130

REACTIONS (1)
  - Anticoagulation drug level increased [Recovered/Resolved]

NARRATIVE: CASE EVENT DATE: 20200130
